FAERS Safety Report 17584362 (Version 2)
Quarter: 2020Q3

REPORT INFORMATION
  Report Type: Other
  Country: JP (occurrence: JP)
  Receive Date: 20200326
  Receipt Date: 20200803
  Transmission Date: 20201102
  Serious: Yes (Death, Other)
  Sender: FDA-Public Use
  Company Number: JP-ROCHE-2570398

PATIENT
  Age: 89 Year
  Sex: Female
  Weight: 61 kg

DRUGS (4)
  1. FUROSEMIDE. [Concomitant]
     Active Substance: FUROSEMIDE
     Indication: PRODUCT USED FOR UNKNOWN INDICATION
  2. ALTEPLASE. [Suspect]
     Active Substance: ALTEPLASE
     Indication: EMBOLISM
  3. AZILSARTAN [Concomitant]
     Active Substance: AZILSARTAN KAMEDOXOMIL
     Indication: PRODUCT USED FOR UNKNOWN INDICATION
  4. ALTEPLASE. [Suspect]
     Active Substance: ALTEPLASE
     Indication: ISCHAEMIC STROKE
     Route: 042

REACTIONS (5)
  - Brain herniation [Fatal]
  - Peripheral artery occlusion [Unknown]
  - Cardiac failure congestive [Unknown]
  - Brain oedema [Unknown]
  - General physical health deterioration [Unknown]
